FAERS Safety Report 20564765 (Version 1)
Quarter: 2022Q1

REPORT INFORMATION
  Report Type: Spontaneous
  Country: US (occurrence: US)
  Receive Date: 20220308
  Receipt Date: 20220308
  Transmission Date: 20220423
  Serious: Yes (Other)
  Sender: FDA-Public Use
  Company Number: US-SA-SAC20220303002146

PATIENT
  Age: 78 Year
  Sex: Female

DRUGS (1)
  1. ZANTAC [Suspect]
     Active Substance: RANITIDINE HYDROCHLORIDE
     Indication: Dyspepsia
     Dosage: 25 MG, OCCASSIONAL
     Route: 065
     Dates: start: 199304, end: 201912

REACTIONS (2)
  - Breast cancer stage I [Unknown]
  - Pancreatic carcinoma stage IV [Unknown]

NARRATIVE: CASE EVENT DATE: 20020401
